FAERS Safety Report 21372824 (Version 4)
Quarter: 2023Q1

REPORT INFORMATION
  Report Type: Report from Study
  Country: US (occurrence: US)
  Receive Date: 20220924
  Receipt Date: 20230224
  Transmission Date: 20230418
  Serious: Yes (Hospitalization, Other)
  Sender: FDA-Public Use
  Company Number: US-ABBVIE-22K-163-4414067-00

PATIENT
  Sex: Male

DRUGS (3)
  1. IMBRUVICA [Suspect]
     Active Substance: IBRUTINIB
     Indication: B-cell lymphoma
     Dosage: 420 MILLIGRAMS
     Route: 048
     Dates: start: 20180106, end: 201804
  2. IMBRUVICA [Suspect]
     Active Substance: IBRUTINIB
     Indication: B-cell lymphoma
     Route: 048
  3. IMBRUVICA [Suspect]
     Active Substance: IBRUTINIB
     Indication: B-cell lymphoma
     Route: 048
     Dates: start: 20180405

REACTIONS (12)
  - Cerebrovascular accident [Unknown]
  - Nasal operation [Unknown]
  - Nocturia [Not Recovered/Not Resolved]
  - Renal function test abnormal [Unknown]
  - Pollakiuria [Unknown]
  - Dry mouth [Unknown]
  - Blood pressure increased [Unknown]
  - Prostatic disorder [Unknown]
  - Peripheral swelling [Unknown]
  - Fall [Unknown]
  - Dysarthria [Unknown]
  - Renal disorder [Unknown]
